FAERS Safety Report 16705621 (Version 1)
Quarter: 2019Q4

REPORT INFORMATION
  Report Type: Spontaneous
  Country: US (occurrence: US)
  Receive Date: 20190814
  Receipt Date: 20190814
  Transmission Date: 20200122
  Serious: Yes (Life-Threatening)
  Sender: FDA-Public Use
  Company Number: None

PATIENT
  Age: 42 Year
  Sex: Female
  Weight: 68.4 kg

DRUGS (9)
  1. DEXILANT [Concomitant]
     Active Substance: DEXLANSOPRAZOLE
  2. MAGNESIUM [Concomitant]
     Active Substance: MAGNESIUM
  3. TOPAMAX [Concomitant]
     Active Substance: TOPIRAMATE
  4. BOTOX [Concomitant]
     Active Substance: ONABOTULINUMTOXINA
  5. IMITREX [Concomitant]
     Active Substance: SUMATRIPTAN SUCCINATE
  6. PROZAC [Concomitant]
     Active Substance: FLUOXETINE HYDROCHLORIDE
  7. EMGALITY [Suspect]
     Active Substance: GALCANEZUMAB-GNLM
     Indication: MIGRAINE
     Dosage: ?          OTHER FREQUENCY:MONTHLY;?          THERAPY ONGOING: Y
     Route: 058
     Dates: start: 20190412, end: 20190719
  8. SEROQUEL [Concomitant]
     Active Substance: QUETIAPINE FUMARATE
  9. WELLBUTRIN [Concomitant]
     Active Substance: BUPROPION HYDROCHLORIDE

REACTIONS (4)
  - Anxiety [None]
  - Therapy cessation [None]
  - Suicidal ideation [None]
  - Depression [None]

NARRATIVE: CASE EVENT DATE: 20190604
